FAERS Safety Report 12351492 (Version 2)
Quarter: 2016Q2

REPORT INFORMATION
  Report Type: Report from Study
  Country: US (occurrence: US)
  Receive Date: 20160510
  Receipt Date: 20160606
  Transmission Date: 20160815
  Serious: Yes (Other)
  Sender: FDA-Public Use
  Company Number: US-BAXALTA-2016BLT003181

PATIENT
  Age: 54 Year
  Sex: Female
  Weight: 49.5 kg

DRUGS (1)
  1. HYQVIA [Suspect]
     Active Substance: HUMAN IMMUNOGLOBULIN G\HYALURONIDASE RECOMBINANT HUMAN
     Indication: PRIMARY IMMUNODEFICIENCY SYNDROME
     Dosage: 5 G, UNK, 1ST RAMP UP DOSE
     Route: 058
     Dates: start: 20160503, end: 20160503

REACTIONS (14)
  - Anaphylactic reaction [Recovering/Resolving]
  - Hypoaesthesia oral [Recovering/Resolving]
  - Feeling abnormal [Recovering/Resolving]
  - Dizziness [Unknown]
  - Dyspnoea [Recovering/Resolving]
  - Infusion site erythema [Unknown]
  - Skin discolouration [Unknown]
  - Lip swelling [Unknown]
  - Cellulitis [Unknown]
  - Infusion site pruritus [Recovering/Resolving]
  - Paraesthesia oral [Unknown]
  - Swollen tongue [Unknown]
  - Infusion site urticaria [Recovering/Resolving]
  - Respiratory tract congestion [Unknown]

NARRATIVE: CASE EVENT DATE: 20160503
